FAERS Safety Report 11185274 (Version 1)
Quarter: 2015Q2

REPORT INFORMATION
  Report Type: Spontaneous
  Country: US (occurrence: US)
  Receive Date: 20150612
  Receipt Date: 20150612
  Transmission Date: 20150821
  Serious: No
  Sender: FDA-Public Use
  Company Number: US-SA-2015SA056398

PATIENT
  Sex: Female

DRUGS (4)
  1. SOLOSTAR U300 [Concomitant]
  2. TOUJEO [Suspect]
     Active Substance: INSULIN GLARGINE
     Dosage: DOSE:30 UNIT(S)
     Route: 065
  3. INSULIN [Concomitant]
     Active Substance: INSULIN NOS
  4. LANTUS [Concomitant]
     Active Substance: INSULIN GLARGINE
     Dosage: DOSE:100 UNIT(S)
     Route: 065

REACTIONS (1)
  - Nausea [Recovering/Resolving]
